FAERS Safety Report 20999191 (Version 1)
Quarter: 2022Q3

REPORT INFORMATION
  Report Type: Report from Study
  Country: PH (occurrence: PH)
  Receive Date: 20220623
  Receipt Date: 20220623
  Transmission Date: 20221026
  Serious: Yes (Death, Hospitalization)
  Sender: FDA-Public Use
  Company Number: PH-NOVARTISPH-NVSC2022PH143447

PATIENT
  Sex: Male

DRUGS (1)
  1. TASIGNA [Suspect]
     Active Substance: NILOTINIB
     Indication: Product used for unknown indication
     Dosage: 200 MG
     Route: 048

REACTIONS (7)
  - Brain herniation [Fatal]
  - Haemorrhage intracranial [Fatal]
  - Chronic myeloid leukaemia [Fatal]
  - Coagulopathy [Fatal]
  - Cardiac failure [Fatal]
  - Pneumonia [Fatal]
  - Nosocomial infection [Fatal]
